FAERS Safety Report 11246529 (Version 1)
Quarter: 2015Q3

REPORT INFORMATION
  Report Type: Spontaneous
  Country: US (occurrence: None)
  Receive Date: 20150706
  Receipt Date: 20150706
  Transmission Date: 20151125
  Serious: Yes (Hospitalization)
  Sender: FDA-Public Use
  Company Number: IPC201506-000425

PATIENT
  Age: 59 Year
  Sex: Male

DRUGS (1)
  1. METOPROLOL TARTRATE (METOPROLOL TARTRATE) (METOPROLOL TARTRATE) [Suspect]
     Active Substance: METOPROLOL TARTRATE
     Dosage: 75 MG/KG (7.5 G)

REACTIONS (24)
  - Blood glucose increased [None]
  - Cyanosis [None]
  - Gait disturbance [None]
  - Asthenia [None]
  - Vomiting [None]
  - Atrial fibrillation [None]
  - Urine amphetamine positive [None]
  - Mental status changes [None]
  - Torsade de pointes [None]
  - Cardiac arrest [None]
  - Hyperinsulinaemia [None]
  - Hypomagnesaemia [None]
  - Toxicity to various agents [None]
  - Hyperhidrosis [None]
  - Pulse abnormal [None]
  - Blood creatinine increased [None]
  - Hypotension [None]
  - Intentional overdose [None]
  - Bradycardia [None]
  - Obstructive airways disorder [None]
  - Pulseless electrical activity [None]
  - Cardiogenic shock [None]
  - Hypokalaemia [None]
  - Hyperglycaemia [None]
